FAERS Safety Report 8525268-1 (Version None)
Quarter: 2012Q3

REPORT INFORMATION
  Report Type: 
  Country: None (occurrence: None)
  Receive Date: 20120720
  Receipt Date: 20120717
  Transmission Date: 20120928
  Serious: Yes (Hospitalization, Other)
  Sender: FDA-Public Use
  Company Number: PHHY2012CH061282

PATIENT
  Age: 48 Year
  Sex: Female

DRUGS (4)
  1. ACETAMINOPHEN [Suspect]
     Dosage: 1 G, QD
     Dates: start: 20120301, end: 20120524
  2. NOVALGIN [Suspect]
     Dosage: 80 ORAL DROPS DAILY
     Route: 048
     Dates: start: 20120425, end: 20120525
  3. TILUR [Suspect]
     Dosage: UNK UKN, UNK
     Dates: start: 20120301, end: 20120524
  4. VOLTAREN [Suspect]
     Dosage: 75 MG DAILY DOSE
     Route: 048
     Dates: start: 20120425

REACTIONS (3)
  - PYREXIA [None]
  - AGRANULOCYTOSIS [None]
  - ORAL HERPES [None]
